FAERS Safety Report 24053378 (Version 3)
Quarter: 2024Q3

REPORT INFORMATION
  Report Type: Report from Study
  Country: US (occurrence: US)
  Receive Date: 20240705
  Receipt Date: 20240909
  Transmission Date: 20241017
  Serious: Yes (Other)
  Sender: ROCHE
  Company Number: US-ROCHE-10000012038

PATIENT
  Age: 56 Year
  Sex: Male

DRUGS (2)
  1. OCREVUS [Suspect]
     Active Substance: OCRELIZUMAB
     Indication: Primary progressive multiple sclerosis
     Dosage: DATE OF TREATMENT = 24/MAY/2022, 22/DEC/2023, 14/JUN/2023, DATE OF TREATMENT FOR 1ST HALF INFUSION:
     Route: 065
     Dates: start: 20211124
  2. OCREVUS [Suspect]
     Active Substance: OCRELIZUMAB
     Indication: Relapsing multiple sclerosis

REACTIONS (4)
  - Rash [Recovered/Resolved]
  - Muscle spasms [Unknown]
  - Headache [Unknown]
  - JC polyomavirus test positive [Unknown]
